FAERS Safety Report 15888687 (Version 1)
Quarter: 2019Q1

REPORT INFORMATION
  Report Type: Spontaneous
  Country: US (occurrence: US)
  Receive Date: 20190130
  Receipt Date: 20190130
  Transmission Date: 20190417
  Serious: Yes (Hospitalization, Other)
  Sender: FDA-Public Use
  Company Number: US-RADIUS HEALTH, INC.-2019US000307

PATIENT
  Age: 81 Year
  Sex: Female

DRUGS (2)
  1. TYLENOL [Concomitant]
     Active Substance: ACETAMINOPHEN
     Indication: HEADACHE
  2. TYMLOS [Suspect]
     Active Substance: ABALOPARATIDE
     Indication: OSTEOPOROSIS POSTMENOPAUSAL
     Dosage: 80 MCG, ONCE A DAY
     Route: 058
     Dates: start: 201801

REACTIONS (7)
  - Gingival pain [Unknown]
  - Neck pain [Unknown]
  - Pain in extremity [Unknown]
  - Toothache [Unknown]
  - Headache [Unknown]
  - Cerebrovascular accident [Unknown]
  - Arthralgia [Unknown]

NARRATIVE: CASE EVENT DATE: 201807
